FAERS Safety Report 4578852-4 (Version None)
Quarter: 2005Q1

REPORT INFORMATION
  Report Type: 
  Country: None (occurrence: None)
  Receive Date: 20050211
  Receipt Date: 20050120
  Transmission Date: 20050727
  Serious: Yes (Life-Threatening, Hospitalization)
  Sender: FDA-Public Use
  Company Number: US-2005-BP-00998BP

PATIENT
  Age: 65 Year
  Sex: Female

DRUGS (7)
  1. SPIRIVA [Suspect]
     Indication: CHRONIC OBSTRUCTIVE PULMONARY DISEASE
     Route: 055
     Dates: start: 20040601, end: 20050101
  2. ADVAIR DISKUS 100/50 [Concomitant]
  3. ZYRTEC [Concomitant]
  4. SINGULAIR [Concomitant]
  5. MUCINEX [Concomitant]
  6. FOSAMAX [Concomitant]
  7. KEPPRA [Concomitant]

REACTIONS (2)
  - LUNG INFILTRATION [None]
  - PNEUMONIA ASPIRATION [None]
